FAERS Safety Report 5375801-6 (Version None)
Quarter: 2007Q2

REPORT INFORMATION
  Report Type: 
  Country: None (occurrence: None)
  Receive Date: 20070628
  Receipt Date: 20070619
  Transmission Date: 20071010
  Serious: Yes (Death)
  Sender: FDA-Public Use
  Company Number: B0475859A

PATIENT

DRUGS (8)
  1. MELPHALAN INFUSION (GENERIC) (MELPHALAN) [Suspect]
     Indication: STEM CELL TRANSPLANT
     Dosage: 150 MG/M2/SEE DOSAGE IN TEXT; INTRAVENOUS
     Route: 042
  2. RADIOTHERAPY (FORMULATION UNKNOWN) (RADIOTHERAPY) [Suspect]
     Indication: STEM CELL TRANSPLANT
     Dosage: 1200 CGY/SEE DOSAGE TEXT;
  3. ETOPOSIDE [Suspect]
     Indication: STEM CELL TRANSPLANT
     Dosage: SEE DOSAGE TEXT;
  4. CYCLOPHOSPHAMIDE [Suspect]
     Indication: STEM CELL TRANSPLANT
     Dosage: SEE DOSAGE TEXT;
  5. CARMUSTINE [Suspect]
     Indication: STEM CELL TRANSPLANT
     Dosage: 450 MG/M2;
  6. GRANULOCYTE COL. STIM. FACT [Concomitant]
  7. QUINOLONE [Concomitant]
  8. FLUCONAZOLE [Concomitant]

REACTIONS (1)
  - SEPSIS [None]
